FAERS Safety Report 5591010-X (Version None)
Quarter: 2008Q1

REPORT INFORMATION
  Report Type: 
  Country: None (occurrence: None)
  Receive Date: 20080111
  Receipt Date: 20080111
  Transmission Date: 20080703
  Serious: Yes (Hospitalization)
  Sender: FDA-Public Use
  Company Number: None

PATIENT
  Sex: Male
  Weight: 69.5 kg

DRUGS (3)
  1. CETUXIMAB [Suspect]
     Indication: PANCREATIC CARCINOMA
     Dosage: 250 MG/M2 WEEKLY IV
     Route: 042
     Dates: start: 20071025, end: 20071231
  2. GEMZAR [Suspect]
     Indication: PANCREATIC CARCINOMA
     Dosage: 1 GM/M2 Q2 WEEKS
     Dates: start: 20071025, end: 20071224
  3. OXALIPLATIN [Suspect]
     Indication: PANCREATIC CARCINOMA
     Dosage: 100MG/M2 Q2WEEKS IV
     Route: 042
     Dates: start: 20071025, end: 20071224

REACTIONS (2)
  - CHOLANGITIS [None]
  - STENT OCCLUSION [None]
